FAERS Safety Report 6213657-X (Version None)
Quarter: 2009Q2

REPORT INFORMATION
  Report Type: 
  Country: None (occurrence: None)
  Receive Date: 20090601
  Receipt Date: 20090519
  Transmission Date: 20091009
  Serious: Yes (Hospitalization)
  Sender: FDA-Public Use
  Company Number: 8046870

PATIENT
  Age: 51 Year
  Sex: Female

DRUGS (6)
  1. CDP870 [Suspect]
     Indication: CROHN'S DISEASE
     Dosage: 400 MG 1/2W SC
     Route: 058
     Dates: start: 20041108, end: 20041207
  2. CDP870 [Suspect]
     Indication: CROHN'S DISEASE
     Dosage: 400 MG /M SC
     Route: 058
     Dates: start: 20050104, end: 20050425
  3. CDP870 [Suspect]
     Indication: CROHN'S DISEASE
     Dosage: 400 MG 1/2W SC
     Route: 058
     Dates: start: 20050101, end: 20050101
  4. CDP870 [Suspect]
     Indication: CROHN'S DISEASE
     Dosage: 400 MG /M SC
     Route: 058
     Dates: start: 20050101
  5. PENTASA [Concomitant]
  6. FOLIC ACID [Concomitant]

REACTIONS (1)
  - ERYSIPELAS [None]
